FAERS Safety Report 12341560 (Version 1)
Quarter: 2016Q2

REPORT INFORMATION
  Report Type: Spontaneous
  Country: US (occurrence: None)
  Receive Date: 20160505
  Receipt Date: 20160505
  Transmission Date: 20160815
  Serious: Yes (Hospitalization)
  Sender: FDA-Public Use
  Company Number: None

PATIENT
  Age: 47 Year
  Sex: Male

DRUGS (28)
  1. GLIPIZIDE. [Concomitant]
     Active Substance: GLIPIZIDE
  2. LAXIS [Concomitant]
  3. ELIQUIS [Concomitant]
     Active Substance: APIXABAN
  4. PREDNISONE. [Concomitant]
     Active Substance: PREDNISONE
  5. AMIODARONE HCL [Concomitant]
     Active Substance: AMIODARONE HYDROCHLORIDE
  6. ADVAIR HFA [Concomitant]
     Active Substance: FLUTICASONE PROPIONATE\SALMETEROL XINAFOATE
  7. ALPRAZOLAM. [Concomitant]
     Active Substance: ALPRAZOLAM
  8. RANTIDINE HCL [Concomitant]
  9. SPIRIVA [Concomitant]
     Active Substance: TIOTROPIUM BROMIDE MONOHYDRATE
  10. AVAPRO [Concomitant]
     Active Substance: IRBESARTAN
  11. FENOFIBRATE. [Concomitant]
     Active Substance: FENOFIBRATE
  12. CEVASA [Concomitant]
  13. INLYTA [Suspect]
     Active Substance: AXITINIB
     Indication: RENAL CANCER
     Route: 048
     Dates: start: 20140322
  14. SEROQUEL [Concomitant]
     Active Substance: QUETIAPINE FUMARATE
  15. NIACIN ER [Concomitant]
     Active Substance: NIACIN
  16. MAGNESIUM OXIDE. [Concomitant]
     Active Substance: MAGNESIUM OXIDE
  17. CARVEDILOL. [Concomitant]
     Active Substance: CARVEDILOL
  18. LANTUS [Concomitant]
     Active Substance: INSULIN GLARGINE
  19. NOVOLOG [Concomitant]
     Active Substance: INSULIN ASPART
  20. DIGOXIN. [Concomitant]
     Active Substance: DIGOXIN
  21. TEMAZEPAM. [Concomitant]
     Active Substance: TEMAZEPAM
  22. ASTELIN [Concomitant]
     Active Substance: AZELASTINE HYDROCHLORIDE
  23. OMEGA 3 [Concomitant]
     Active Substance: OMEGA-3 FATTY ACIDS
  24. NASONEX [Concomitant]
     Active Substance: MOMETASONE FUROATE
  25. LOVAZA [Concomitant]
     Active Substance: OMEGA-3-ACID ETHYL ESTERS
  26. VIT 3 [Concomitant]
  27. MELOXICAM. [Concomitant]
     Active Substance: MELOXICAM
  28. LYRICA [Concomitant]
     Active Substance: PREGABALIN

REACTIONS (2)
  - Myocardial infarction [None]
  - Therapy cessation [None]

NARRATIVE: CASE EVENT DATE: 20160420
